FAERS Safety Report 4569133-3 (Version None)
Quarter: 2005Q1

REPORT INFORMATION
  Report Type: 
  Country: None (occurrence: None)
  Receive Date: 20050201
  Receipt Date: 20050117
  Transmission Date: 20050727
  Serious: Yes (Hospitalization)
  Sender: FDA-Public Use
  Company Number: S04-USA-07780-01

PATIENT
  Age: 88 Year
  Sex: 0
  Weight: 47.6277 kg

DRUGS (6)
  1. NAMENDA [Suspect]
     Dosage: 5 MG QD PO
     Route: 048
     Dates: start: 20041201, end: 20041208
  2. ZYRTEC [Concomitant]
  3. DIGOXIN [Concomitant]
  4. CAPTOPRIL [Concomitant]
  5. ARICEPT [Concomitant]
  6. SEROQUEL [Concomitant]

REACTIONS (9)
  - CARDIOVASCULAR DISORDER [None]
  - CEREBRAL ISCHAEMIA [None]
  - CEREBROVASCULAR ACCIDENT [None]
  - CONFUSIONAL STATE [None]
  - DIFFICULTY IN WALKING [None]
  - LACUNAR INFARCTION [None]
  - SYNCOPE [None]
  - URINARY TRACT INFECTION [None]
  - VITAL FUNCTIONS ABNORMAL [None]
